FAERS Safety Report 5642294-0 (Version None)
Quarter: 2008Q2

REPORT INFORMATION
  Report Type: 
  Country: None (occurrence: None)
  Receive Date: 20080226
  Receipt Date: 20080218
  Transmission Date: 20081010
  Serious: Yes (Death, Hospitalization)
  Sender: FDA-Public Use
  Company Number: 2008-169906-NL

PATIENT
  Sex: Female

DRUGS (5)
  1. CHORIONIC GONADTROPIN [Suspect]
     Dosage: 10000 IU ONCE
  2. PUREGON [Suspect]
     Indication: OVARIAN DISORDER
     Dosage: DF
  3. SUPRECUR [Concomitant]
  4. MIDAZOLAM HYDROCHLORIDE [Concomitant]
  5. FENTANYL [Concomitant]

REACTIONS (2)
  - ACUTE RESPIRATORY DISTRESS SYNDROME [None]
  - OVARIAN HYPERSTIMULATION SYNDROME [None]
